FAERS Safety Report 4289375-4 (Version None)
Quarter: 2004Q1

REPORT INFORMATION
  Report Type: 
  Country: None (occurrence: None)
  Receive Date: 20040203
  Receipt Date: 20021203
  Transmission Date: 20041129
  Serious: Yes (Other)
  Sender: FDA-Public Use
  Company Number: 200227226BWH

PATIENT
  Age: 60 Year
  Sex: Female
  Weight: 67.586 kg

DRUGS (2)
  1. AVELOX [Suspect]
     Indication: BRONCHITIS
     Dosage: 400 MG, QD, ORAL
     Route: 048
     Dates: start: 20021118, end: 20021128
  2. HORMONE REPLACEMENT THERAPY [Concomitant]

REACTIONS (5)
  - DYSPNOEA [None]
  - FLUSHING [None]
  - HYPERSENSITIVITY [None]
  - RASH [None]
  - URTICARIA [None]
